FAERS Safety Report 9113465 (Version 1)
Quarter: 2013Q1

REPORT INFORMATION
  Report Type: Spontaneous
  Country: US (occurrence: US)
  Receive Date: 20130129
  Receipt Date: 20130129
  Transmission Date: 20140127
  Serious: No
  Sender: FDA-Public Use
  Company Number: US-ABBOTT-12P-163-0933531-00

PATIENT
  Age: 42 Year
  Sex: Female
  Weight: 61.29 kg

DRUGS (3)
  1. HUMIRA 40 MG/0.8 ML PEN [Suspect]
     Indication: RHEUMATOID ARTHRITIS
     Dates: start: 20120423
  2. METHOTREXATE [Concomitant]
     Indication: RHEUMATOID ARTHRITIS
  3. ALEVE [Concomitant]
     Indication: RHEUMATOID ARTHRITIS

REACTIONS (4)
  - Incorrect route of drug administration [Recovered/Resolved]
  - Wrong technique in drug usage process [Unknown]
  - Pain in extremity [Recovered/Resolved]
  - Injection site pain [Recovered/Resolved]
